FAERS Safety Report 11111208 (Version 1)
Quarter: 2015Q2

REPORT INFORMATION
  Report Type: Spontaneous
  Country: CA (occurrence: CA)
  Receive Date: 20150513
  Receipt Date: 20150513
  Transmission Date: 20150821
  Serious: Yes (Other)
  Sender: FDA-Public Use
  Company Number: CA-TEVA-561311USA

PATIENT
  Age: 67 Year
  Sex: Female

DRUGS (1)
  1. TEVA-AMOXICILLIN [Suspect]
     Active Substance: AMOXICILLIN
     Indication: TOOTH ABSCESS
     Dosage: 1500 MILLIGRAM DAILY; WAS PRESRIBED 3 TIMES A DAY FOR 1 WEEK BUT 1 CAPSULE WAS TAKEN  ONLY
     Route: 048
     Dates: start: 20150505, end: 20150505

REACTIONS (6)
  - Pyrexia [Unknown]
  - Coeliac disease [Unknown]
  - Diarrhoea [Unknown]
  - Vomiting [Unknown]
  - Chills [Unknown]
  - Dizziness [Unknown]

NARRATIVE: CASE EVENT DATE: 20150505
